FAERS Safety Report 7884790-1 (Version None)
Quarter: 2011Q4

REPORT INFORMATION
  Report Type: 
  Country: None (occurrence: None)
  Receive Date: 20111102
  Receipt Date: 20111024
  Transmission Date: 20120403
  Serious: No
  Sender: FDA-Public Use
  Company Number: US-B.I. PHARMACEUTICALS,INC./RIDGEFIELD-2011-BP-24797BP

PATIENT
  Sex: Male

DRUGS (2)
  1. SPIRIVA [Suspect]
     Indication: BRONCHITIS
     Dosage: 18 MCG
     Route: 055
     Dates: start: 20111001
  2. MEDICATION NOT FURTHER SPECIFIED [Concomitant]

REACTIONS (3)
  - OROPHARYNGEAL PAIN [None]
  - DRY MOUTH [None]
  - GLOSSODYNIA [None]
